FAERS Safety Report 12262790 (Version 1)
Quarter: 2016Q2

REPORT INFORMATION
  Report Type: Spontaneous
  Country: US (occurrence: US)
  Receive Date: 20160413
  Receipt Date: 20160413
  Transmission Date: 20160815
  Serious: No
  Sender: FDA-Public Use
  Company Number: US-MYLANLABS-2015M1036463

PATIENT
  Sex: Female

DRUGS (1)
  1. LATANOPROST. [Suspect]
     Active Substance: LATANOPROST
     Indication: GLAUCOMA
     Dosage: 1 GTT, QD, EACH EYE
     Route: 047
     Dates: end: 2015

REACTIONS (5)
  - Insomnia [Recovered/Resolved]
  - Reaction to drug excipients [Recovered/Resolved]
  - Secretion discharge [Recovered/Resolved]
  - Onychoclasis [Recovered/Resolved]
  - Dry skin [Recovered/Resolved]

NARRATIVE: CASE EVENT DATE: 2015
